FAERS Safety Report 5667721-4 (Version None)
Quarter: 2008Q1

REPORT INFORMATION
  Report Type: 
  Country: None (occurrence: None)
  Receive Date: 20080315
  Receipt Date: 20080128
  Transmission Date: 20080703
  Serious: No
  Sender: FDA-Public Use
  Company Number: US-ABBOTT-08P-163-0436760-00

PATIENT
  Sex: Female
  Weight: 58.566 kg

DRUGS (3)
  1. HUMIRA [Suspect]
     Indication: PSORIATIC ARTHROPATHY
     Route: 058
     Dates: start: 20071118
  2. METHOTREXATE [Concomitant]
     Indication: DRUG USE FOR UNKNOWN INDICATION
  3. IBUPROFEN [Concomitant]
     Indication: DRUG USE FOR UNKNOWN INDICATION

REACTIONS (3)
  - CAPILLARY DISORDER [None]
  - CONTUSION [None]
  - RASH MACULO-PAPULAR [None]
